FAERS Safety Report 7014120-9 (Version None)
Quarter: 2010Q3

REPORT INFORMATION
  Report Type: 
  Country: None (occurrence: None)
  Receive Date: 20100927
  Receipt Date: 20100917
  Transmission Date: 20110219
  Serious: Yes (Hospitalization)
  Sender: FDA-Public Use
  Company Number: US-US-EMD SERONO, INC.-7018067

PATIENT
  Sex: Female
  Weight: 59 kg

DRUGS (5)
  1. REBIF [Suspect]
     Indication: MULTIPLE SCLEROSIS
     Route: 058
     Dates: start: 20091111, end: 20100830
  2. CYMBALTA [Concomitant]
     Indication: DEPRESSION
  3. ASPIRIN [Concomitant]
  4. CALCIUM [Concomitant]
  5. LISINOPRIL [Concomitant]
     Indication: HYPERTENSION
     Dates: end: 20100701

REACTIONS (11)
  - BLOOD POTASSIUM DECREASED [None]
  - BURNING SENSATION [None]
  - CRYING [None]
  - DISTURBANCE IN ATTENTION [None]
  - HEADACHE [None]
  - HYPOAESTHESIA [None]
  - INFLAMMATION [None]
  - INTESTINAL ISCHAEMIA [None]
  - OESOPHAGEAL STENOSIS [None]
  - PANCREATITIS ACUTE [None]
  - POLYP [None]
